FAERS Safety Report 12733286 (Version 1)
Quarter: 2016Q3

REPORT INFORMATION
  Report Type: Report from Study
  Country: KR (occurrence: KR)
  Receive Date: 20160912
  Receipt Date: 20160912
  Transmission Date: 20161109
  Serious: Yes (Other)
  Sender: FDA-Public Use
  Company Number: KR-TEVA-691736ROM

PATIENT
  Age: 79 Year
  Sex: Male
  Weight: 60 kg

DRUGS (14)
  1. TRIFLUSAL [Concomitant]
     Active Substance: TRIFLUSAL
     Dosage: 600 MILLIGRAM DAILY;
     Route: 065
     Dates: start: 20130826
  2. MEMANTINE HYDROCHLORIDE. [Concomitant]
     Active Substance: MEMANTINE HYDROCHLORIDE
     Dosage: 10 MILLIGRAM DAILY;
     Route: 065
     Dates: start: 20150806
  3. BENSERAZIDE HYDROCHLORIDE, LEVODOPA [Concomitant]
     Dosage: 5 DOSAGE FORMS DAILY;
     Route: 065
     Dates: start: 20130826
  4. BENSERAZIDE HYDROCHLORIDE, LEVODOPA [Concomitant]
     Dosage: 1.5 DOSAGE FORMS DAILY;
     Route: 065
     Dates: start: 20130826
  5. RIVASTIGMINE. [Concomitant]
     Active Substance: RIVASTIGMINE
     Dosage: 72 MILLIGRAM DAILY;
     Route: 065
     Dates: start: 20131018
  6. THEOBROMINE [Concomitant]
     Active Substance: THEOBROMINE
     Dosage: 600 MILLIGRAM DAILY;
     Route: 065
     Dates: start: 20150226
  7. CALCIUM POLYCARBOPHIL. [Concomitant]
     Active Substance: CALCIUM POLYCARBOPHIL
     Dosage: 1875 MILLIGRAM DAILY;
     Route: 065
     Dates: start: 20150226
  8. ENTACAPONE. [Concomitant]
     Active Substance: ENTACAPONE
     Dosage: 200 MILLIGRAM DAILY;
     Route: 065
     Dates: start: 20130826
  9. LANSOPRAZOLE. [Concomitant]
     Active Substance: LANSOPRAZOLE
     Dosage: 60 MILLIGRAM DAILY;
     Route: 065
     Dates: start: 20140206
  10. LEVODOPA, CARBIDOPA [Concomitant]
     Active Substance: CARBIDOPA\LEVODOPA
     Dosage: 2 DOSAGE FORMS DAILY;
     Route: 065
     Dates: start: 20130826
  11. FLURAZEPAM HYDROCHLORIDE. [Concomitant]
     Active Substance: FLURAZEPAM HYDROCHLORIDE
     Dosage: 120 MILLIGRAM DAILY;
     Route: 065
     Dates: start: 20130827, end: 20160120
  12. ENTACAPONE. [Concomitant]
     Active Substance: ENTACAPONE
     Dosage: 800 MILLIGRAM DAILY;
     Route: 065
     Dates: start: 20130826
  13. AZILECT [Suspect]
     Active Substance: RASAGILINE MESYLATE
     Indication: PARKINSON^S DISEASE
     Dosage: 1 MILLIGRAM DAILY;
     Route: 048
     Dates: start: 20150501
  14. DOMPERIDONE MALEATE [Concomitant]
     Active Substance: DOMPERIDONE MALEATE
     Dosage: 30 MILLIGRAM DAILY;
     Route: 065
     Dates: start: 20130913, end: 20150823

REACTIONS (3)
  - Sleep disorder [Recovered/Resolved]
  - Hypertension [Recovered/Resolved]
  - Pneumonia [Recovered/Resolved]

NARRATIVE: CASE EVENT DATE: 20150501
